FAERS Safety Report 22242761 (Version 1)
Quarter: 2023Q2

REPORT INFORMATION
  Report Type: Report from Study
  Country: US (occurrence: US)
  Receive Date: 20230424
  Receipt Date: 20230424
  Transmission Date: 20230721
  Serious: No
  Sender: FDA-Public Use
  Company Number: US-002147023-NVSC2023US089712

PATIENT
  Sex: Female

DRUGS (24)
  1. CLINDAMYCIN [Suspect]
     Active Substance: CLINDAMYCIN
     Indication: Hidradenitis
     Dosage: 1 %
     Route: 061
  2. TRIAMCINOLONE [Suspect]
     Active Substance: TRIAMCINOLONE
     Indication: Hidradenitis
     Dosage: 0.1 %
     Route: 061
  3. ESCITALOPRAM [Suspect]
     Active Substance: ESCITALOPRAM OXALATE
     Indication: Hidradenitis
     Dosage: 20 MG
     Route: 048
  4. ESCITALOPRAM [Suspect]
     Active Substance: ESCITALOPRAM OXALATE
     Dosage: 25 MG
     Route: 048
  5. LEVOTHYROXINE [Suspect]
     Active Substance: LEVOTHYROXINE
     Indication: Hidradenitis
     Dosage: 75 UG
     Route: 048
  6. LISINOPRIL [Suspect]
     Active Substance: LISINOPRIL
     Indication: Hidradenitis
     Dosage: 20-25MG (LISINOPRIL HCTZ)
     Route: 048
  7. MINOCYCLINE [Suspect]
     Active Substance: MINOCYCLINE HYDROCHLORIDE
     Indication: Hidradenitis
     Dosage: 100 MG (FORMULATION CAPSULE)
     Route: 048
  8. SIMVASTATIN [Suspect]
     Active Substance: SIMVASTATIN
     Indication: Hidradenitis
     Dosage: 40 MG (FORMULATION TABLET)
     Route: 048
  9. ZINC [Suspect]
     Active Substance: ZINC
     Indication: Hidradenitis
     Dosage: UNK
     Route: 048
  10. SPIRONOLACTONE [Suspect]
     Active Substance: SPIRONOLACTONE
     Indication: Hidradenitis
     Dosage: 50 MG
     Route: 065
  11. SPIRONOLACTONE [Suspect]
     Active Substance: SPIRONOLACTONE
     Dosage: 100 MG
     Route: 048
  12. DOXYCYCLINE [Suspect]
     Active Substance: DOXYCYCLINE
     Indication: Hidradenitis
     Dosage: UNK
     Route: 065
  13. ZINC GLUCONATE [Suspect]
     Active Substance: ZINC GLUCONATE
     Indication: Hidradenitis
     Dosage: UNK
     Route: 065
  14. METFORMIN [Suspect]
     Active Substance: METFORMIN HYDROCHLORIDE
     Indication: Hidradenitis
     Dosage: 500 MG
     Route: 048
  15. CHLORHEXIDINE GLUCONATE [Suspect]
     Active Substance: CHLORHEXIDINE GLUCONATE
     Indication: Hidradenitis
     Dosage: 4 % (FORMULATION LIQUID)
     Route: 061
  16. CLINDAMYCIN PHOSPHATE [Suspect]
     Active Substance: CLINDAMYCIN PHOSPHATE
     Indication: Hidradenitis
     Dosage: 1 % (LOTION, LIQUID, SOLUTION, GEL)
     Route: 061
  17. KETOCONAZOLE [Suspect]
     Active Substance: KETOCONAZOLE
     Indication: Hidradenitis
     Dosage: 2 %
     Route: 061
  18. TACROLIMUS [Suspect]
     Active Substance: TACROLIMUS
     Indication: Hidradenitis
     Dosage: 0.1 %
     Route: 061
  19. TRETINOIN [Suspect]
     Active Substance: TRETINOIN
     Indication: Hidradenitis
     Dosage: 0.05 % (FORMULATION: CREAM)
     Route: 061
  20. CHLORHEXIDINE [Suspect]
     Active Substance: CHLORHEXIDINE
     Indication: Hidradenitis
     Dosage: UNK
     Route: 065
  21. TRIAMCINOLONE ACETONIDE [Suspect]
     Active Substance: TRIAMCINOLONE ACETONIDE
     Indication: Hidradenitis
     Dosage: UNK
     Route: 065
  22. NEXPLANON [Suspect]
     Active Substance: ETONOGESTREL
     Indication: Hidradenitis
     Dosage: 68 MG (SUBDURAL IMPLANT)
     Route: 065
  23. HYDROCHLOROTHIAZIDE\LISINOPRIL [Suspect]
     Active Substance: HYDROCHLOROTHIAZIDE\LISINOPRIL
     Indication: Hidradenitis
     Dosage: 20-25 MG
     Route: 048
  24. HUMIRA [Concomitant]
     Active Substance: ADALIMUMAB
     Indication: Hidradenitis
     Dosage: UNK
     Route: 065
     Dates: start: 202208

REACTIONS (13)
  - Skin lesion inflammation [Unknown]
  - Drug intolerance [Unknown]
  - Scar [Unknown]
  - Acne [Unknown]
  - Cyst [Unknown]
  - Abdominal discomfort [Unknown]
  - Acne cystic [Unknown]
  - Papule [Unknown]
  - Cardiovascular disorder [Unknown]
  - Hyperlipidaemia [Unknown]
  - Hypertension [Unknown]
  - Depression [Unknown]
  - Drug ineffective [Unknown]
